FAERS Safety Report 5354638-8 (Version None)
Quarter: 2007Q2

REPORT INFORMATION
  Report Type: 
  Country: None (occurrence: None)
  Receive Date: 20070612
  Receipt Date: 20070509
  Transmission Date: 20071010
  Serious: Yes (Death, Life-Threatening, Hospitalization, Disabling, Other)
  Sender: FDA-Public Use
  Company Number: ES-ASTRAZENECA-2007SE01687

PATIENT
  Age: 23388 Day
  Sex: Male

DRUGS (20)
  1. ROSUVASTATIN [Suspect]
     Indication: CARDIAC FAILURE CHRONIC
     Route: 048
     Dates: start: 20040519, end: 20060713
  2. ROSUVASTATIN [Suspect]
     Route: 048
     Dates: start: 20060814
  3. SERETIDE 50 [Concomitant]
     Indication: CHRONIC OBSTRUCTIVE PULMONARY DISEASE
     Dosage: TOTAL DAILY DOSE: 2 PULSES RESPIRATORY (INHALATION)
     Route: 055
  4. SPIRIVA [Concomitant]
     Indication: CHRONIC OBSTRUCTIVE PULMONARY DISEASE
     Dosage: TOTAL DAILY DOSE: 1 PULSE RESPIRATORY (INHALATION)
     Route: 055
  5. PANTECTA [Concomitant]
     Indication: PROPHYLAXIS
     Route: 048
     Dates: start: 20050103
  6. FLUMIL FORTE [Concomitant]
     Indication: INCREASED UPPER AIRWAY SECRETION
     Route: 048
     Dates: start: 20050104
  7. TRANKIMAZIN [Concomitant]
     Indication: ANXIETY
     Route: 048
  8. ATACAND [Concomitant]
     Indication: CARDIAC FAILURE
     Route: 048
     Dates: start: 20040403, end: 20060703
  9. ATACAND [Concomitant]
     Route: 048
     Dates: start: 20060704, end: 20060713
  10. ATACAND [Concomitant]
     Route: 048
     Dates: start: 20060814
  11. DIGOXIN [Concomitant]
     Indication: CARDIAC FAILURE
     Route: 048
     Dates: start: 20060907
  12. DILUTOL [Concomitant]
     Indication: CARDIAC FAILURE
     Route: 048
     Dates: start: 20060907
  13. PROCTIUM [Concomitant]
     Indication: HAEMORRHOIDS
     Route: 054
  14. DACORTIN [Concomitant]
     Indication: COLITIS ULCERATIVE
     Route: 048
     Dates: start: 20060919, end: 20061012
  15. DACORTIN [Concomitant]
     Route: 048
     Dates: start: 20061013
  16. PENTASA [Concomitant]
     Indication: COLITIS ULCERATIVE
     Route: 048
     Dates: start: 20060821
  17. AUGMENTIN '125' [Concomitant]
     Indication: RESPIRATORY TRACT INFECTION
     Route: 048
     Dates: start: 20061119
  18. PLAVIX [Concomitant]
     Indication: THROMBOSIS PROPHYLAXIS
     Route: 048
     Dates: start: 20041118, end: 20060703
  19. PLAVIX [Concomitant]
     Route: 048
     Dates: start: 20061005, end: 20061203
  20. PLAVIX [Concomitant]
     Route: 048
     Dates: start: 20061219

REACTIONS (5)
  - CARDIAC FAILURE [None]
  - CHRONIC OBSTRUCTIVE PULMONARY DISEASE [None]
  - HEART INJURY [None]
  - OSTEOPOROTIC FRACTURE [None]
  - SUICIDE ATTEMPT [None]
